FAERS Safety Report 14133044 (Version 3)
Quarter: 2018Q1

REPORT INFORMATION
  Report Type: Report from Study
  Country: JP (occurrence: JP)
  Receive Date: 20171026
  Receipt Date: 20180105
  Transmission Date: 20180508
  Serious: No
  Sender: FDA-Public Use
  Company Number: JP-ALLERGAN-1750665US

PATIENT
  Age: 22 Year
  Sex: Female
  Weight: 51 kg

DRUGS (12)
  1. ESCITALOPRAM OXALATE UNK [Suspect]
     Active Substance: ESCITALOPRAM OXALATE
     Dosage: 5 MG, QD
     Route: 048
     Dates: start: 20170131, end: 20170228
  2. ABILIFY [Concomitant]
     Active Substance: ARIPIPRAZOLE
     Route: 048
  3. ESCITALOPRAM OXALATE UNK [Suspect]
     Active Substance: ESCITALOPRAM OXALATE
     Indication: SOCIAL ANXIETY DISORDER
     Dosage: 5 MG, QD
     Route: 048
     Dates: start: 20170303, end: 20170420
  4. MEILAX [Concomitant]
     Active Substance: ETHYL LOFLAZEPATE
     Route: 048
  5. AKINETON [Concomitant]
     Active Substance: BIPERIDEN HYDROCHLORIDE
     Route: 048
  6. CONSTAN [Concomitant]
     Active Substance: ALPRAZOLAM
     Route: 048
  7. AKINETON [Concomitant]
     Active Substance: BIPERIDEN HYDROCHLORIDE
     Indication: PROPHYLAXIS
     Route: 065
  8. PAXIL CR [Suspect]
     Active Substance: PAROXETINE HYDROCHLORIDE
     Indication: SOCIAL ANXIETY DISORDER
     Dosage: 37.5 MG, QD
     Route: 048
     Dates: end: 20170302
  9. CONSTAN [Concomitant]
     Active Substance: ALPRAZOLAM
     Indication: SOCIAL ANXIETY DISORDER
     Route: 065
  10. METHYCOBAL [Concomitant]
     Active Substance: METHYLCOBALAMIN
     Indication: EYELID PTOSIS
     Dosage: UNK
     Route: 065
  11. MEILAX [Concomitant]
     Active Substance: ETHYL LOFLAZEPATE
     Indication: SOCIAL ANXIETY DISORDER
     Route: 065
  12. ABILIFY [Concomitant]
     Active Substance: ARIPIPRAZOLE
     Indication: SOCIAL ANXIETY DISORDER
     Route: 065

REACTIONS (6)
  - Malaise [Unknown]
  - Tremor [Unknown]
  - Affect lability [Recovered/Resolved]
  - Nausea [Unknown]
  - Musculoskeletal stiffness [Unknown]
  - Seizure [Unknown]

NARRATIVE: CASE EVENT DATE: 20170410
